FAERS Safety Report 6267335-1 (Version None)
Quarter: 2009Q3

REPORT INFORMATION
  Report Type: 
  Country: None (occurrence: None)
  Receive Date: 20090714
  Receipt Date: 20090706
  Transmission Date: 20100115
  Serious: Yes (Disabling)
  Sender: FDA-Public Use
  Company Number: A0792528A

PATIENT
  Age: 53 Year
  Sex: Female
  Weight: 67.3 kg

DRUGS (1)
  1. VALTREX [Suspect]
     Dosage: 2G SINGLE DOSE
     Route: 048
     Dates: start: 20090601

REACTIONS (11)
  - CHILLS [None]
  - DISABILITY [None]
  - FATIGUE [None]
  - HEADACHE [None]
  - MALAISE [None]
  - NAUSEA [None]
  - NEPHROLITHIASIS [None]
  - PAIN [None]
  - PROTEIN URINE PRESENT [None]
  - RENAL DISORDER [None]
  - RENAL PAIN [None]
